FAERS Safety Report 20711538 (Version 1)
Quarter: 2022Q2

REPORT INFORMATION
  Report Type: Spontaneous
  Country: PL (occurrence: PL)
  Receive Date: 20220414
  Receipt Date: 20220414
  Transmission Date: 20220720
  Serious: Yes (Other)
  Sender: FDA-Public Use
  Company Number: PL-002147023-NVSC2022PL080697

PATIENT

DRUGS (1)
  1. RUXOLITINIB [Suspect]
     Active Substance: RUXOLITINIB
     Indication: Product used for unknown indication
     Dosage: UNK
     Route: 065
     Dates: start: 201902, end: 202002

REACTIONS (2)
  - Splenomegaly [Recovering/Resolving]
  - Leukocytosis [Recovering/Resolving]

NARRATIVE: CASE EVENT DATE: 20200101
